FAERS Safety Report 8016228-8 (Version None)
Quarter: 2011Q4

REPORT INFORMATION
  Report Type: 
  Country: None (occurrence: None)
  Receive Date: 20111227
  Receipt Date: 20111212
  Transmission Date: 20120403
  Serious: Yes (Hospitalization)
  Sender: FDA-Public Use
  Company Number: 2011-01284

PATIENT
  Age: 82 Year
  Sex: Female
  Weight: 75.7507 kg

DRUGS (8)
  1. COUMADIN [Concomitant]
  2. LOSARTAN POTASSIUM [Suspect]
     Indication: ATRIAL FIBRILLATION
     Dosage: 50 MG (50 MG, DAILY), PER ORAL 25 MG (50 MG, HALF TABLET DAILY), PER ORAL
     Route: 048
     Dates: start: 20111105
  3. LOSARTAN POTASSIUM [Suspect]
     Indication: HYPERTENSION
     Dosage: 50 MG (50 MG, DAILY), PER ORAL 25 MG (50 MG, HALF TABLET DAILY), PER ORAL
     Route: 048
     Dates: start: 20111105
  4. LOSARTAN POTASSIUM [Suspect]
     Indication: ATRIAL FIBRILLATION
     Dosage: 50 MG (50 MG, DAILY), PER ORAL 25 MG (50 MG, HALF TABLET DAILY), PER ORAL
     Route: 048
     Dates: start: 20110101, end: 20111001
  5. LOSARTAN POTASSIUM [Suspect]
     Indication: HYPERTENSION
     Dosage: 50 MG (50 MG, DAILY), PER ORAL 25 MG (50 MG, HALF TABLET DAILY), PER ORAL
     Route: 048
     Dates: start: 20110101, end: 20111001
  6. LOSARTAN POTASSIUM [Suspect]
     Indication: ATRIAL FIBRILLATION
     Dosage: 50 MG (50 MG, DAILY), PER ORAL 25 MG (50 MG, HALF TABLET DAILY), PER ORAL
     Route: 048
     Dates: start: 20111013, end: 20111104
  7. LOSARTAN POTASSIUM [Suspect]
     Indication: HYPERTENSION
     Dosage: 50 MG (50 MG, DAILY), PER ORAL 25 MG (50 MG, HALF TABLET DAILY), PER ORAL
     Route: 048
     Dates: start: 20111013, end: 20111104
  8. LEVOTHYROXINE (TABLETS) [Concomitant]

REACTIONS (8)
  - HYPOTENSION [None]
  - APHASIA [None]
  - PRODUCT SUBSTITUTION ISSUE [None]
  - VISION BLURRED [None]
  - ANXIETY [None]
  - DIZZINESS [None]
  - CATARACT [None]
  - PANIC ATTACK [None]
